FAERS Safety Report 22201464 (Version 1)
Quarter: 2023Q2

REPORT INFORMATION
  Report Type: Spontaneous
  Country: US (occurrence: None)
  Receive Date: 20230411
  Receipt Date: 20230411
  Transmission Date: 20230721
  Serious: Yes (Other)
  Sender: FDA-Public Use
  Company Number: None

PATIENT
  Age: 21 Year
  Sex: Male

DRUGS (1)
  1. CAFFEINE [Suspect]
     Active Substance: CAFFEINE
     Dosage: FREQUENCY : DAILY;?
     Route: 048

REACTIONS (1)
  - Chest pain [None]

NARRATIVE: CASE EVENT DATE: 20221017
